FAERS Safety Report 4692905-1 (Version None)
Quarter: 2005Q2

REPORT INFORMATION
  Report Type: 
  Country: None (occurrence: None)
  Receive Date: 20050617
  Receipt Date: 20050118
  Transmission Date: 20051028
  Serious: Yes (Hospitalization)
  Sender: FDA-Public Use
  Company Number: US-2005-BP-00787BP

PATIENT
  Sex: Female

DRUGS (1)
  1. MICARDIS HCT [Suspect]
     Route: 048
     Dates: start: 20041228

REACTIONS (6)
  - CORONARY ARTERY OCCLUSION [None]
  - DIALYSIS [None]
  - KIDNEY INFECTION [None]
  - RASH [None]
  - RENAL FAILURE [None]
  - STAPHYLOCOCCAL INFECTION [None]
